FAERS Safety Report 24023937 (Version 2)
Quarter: 2024Q2

REPORT INFORMATION
  Report Type: Report from Study
  Country: PH (occurrence: PH)
  Receive Date: 20240627
  Receipt Date: 20240628
  Transmission Date: 20240716
  Serious: No
  Sender: FDA-Public Use
  Company Number: PH-ROCHE-3514428

PATIENT
  Age: 42 Year
  Sex: Female
  Weight: 57.0 kg

DRUGS (1)
  1. PHESGO [Suspect]
     Active Substance: HYALURONIDASE-ZZXF\PERTUZUMAB\TRASTUZUMAB
     Indication: Breast cancer metastatic
     Dosage: 600MG X 1 VIAL
     Route: 058

REACTIONS (1)
  - Urinary tract infection [Recovered/Resolved]
